FAERS Safety Report 13937175 (Version 3)
Quarter: 2017Q4

REPORT INFORMATION
  Report Type: Spontaneous
  Country: GB (occurrence: US)
  Receive Date: 20170905
  Receipt Date: 20171003
  Transmission Date: 20180320
  Serious: Yes (Hospitalization, Other)
  Sender: FDA-Public Use
  Company Number: US-SA-2017SA158771

PATIENT
  Age: 40 Year
  Sex: Female

DRUGS (17)
  1. TENOFOVIR DISOPROXIL FUMARATE/EMTRICITABINE [Concomitant]
     Indication: HIV INFECTION
  2. LEVOFLOXACIN. [Concomitant]
     Active Substance: LEVOFLOXACIN
     Indication: TUBERCULOSIS OF GENITOURINARY SYSTEM
     Route: 065
  3. RIFAMPICIN [Suspect]
     Active Substance: RIFAMPIN
     Indication: TUBERCULOSIS OF GENITOURINARY SYSTEM
     Route: 065
  4. NITROFURANTOIN. [Concomitant]
     Active Substance: NITROFURANTOIN
     Indication: HAEMATURIA
  5. ISONIAZID. [Suspect]
     Active Substance: ISONIAZID
     Indication: TUBERCULOSIS OF GENITOURINARY SYSTEM
     Route: 065
  6. ACETYLCYSTEINE. [Suspect]
     Active Substance: ACETYLCYSTEINE
     Route: 042
  7. NITROFURANTOIN. [Concomitant]
     Active Substance: NITROFURANTOIN
     Indication: PYURIA
  8. ISONIAZID. [Suspect]
     Active Substance: ISONIAZID
     Indication: TUBERCULOSIS OF GENITOURINARY SYSTEM
     Route: 065
  9. ETHAMBUTOL [Suspect]
     Active Substance: ETHAMBUTOL HYDROCHLORIDE
     Indication: TUBERCULOSIS OF GENITOURINARY SYSTEM
     Route: 065
  10. PHENAZOPYRIDINE. [Concomitant]
     Active Substance: PHENAZOPYRIDINE
     Indication: PYURIA
  11. RIFABUTIN. [Suspect]
     Active Substance: RIFABUTIN
     Indication: TUBERCULOSIS OF GENITOURINARY SYSTEM
     Route: 065
  12. PHENAZOPYRIDINE. [Concomitant]
     Active Substance: PHENAZOPYRIDINE
     Indication: HAEMATURIA
  13. NEVIRAPINE. [Suspect]
     Active Substance: NEVIRAPINE
     Indication: HIV INFECTION
     Route: 065
  14. RITONAVIR/LOPINAVIR [Suspect]
     Active Substance: LOPINAVIR\RITONAVIR
     Indication: HIV INFECTION
     Route: 065
  15. RALTEGRAVIR. [Suspect]
     Active Substance: RALTEGRAVIR
     Indication: HIV INFECTION
     Route: 065
  16. PYRAZINAMIDE. [Suspect]
     Active Substance: PYRAZINAMIDE
     Indication: TUBERCULOSIS OF GENITOURINARY SYSTEM
     Route: 065
  17. ETHAMBUTOL [Suspect]
     Active Substance: ETHAMBUTOL HYDROCHLORIDE
     Indication: TUBERCULOSIS OF GENITOURINARY SYSTEM
     Route: 065

REACTIONS (32)
  - Arthralgia [Recovering/Resolving]
  - Myalgia [Recovering/Resolving]
  - Tachycardia [Unknown]
  - Prothrombin time prolonged [Unknown]
  - Bilirubin conjugated increased [Unknown]
  - Headache [Unknown]
  - Blood creatinine increased [Unknown]
  - Blood urea increased [Unknown]
  - Fatigue [Unknown]
  - Liver tenderness [Unknown]
  - Blood bilirubin increased [Unknown]
  - Ocular icterus [Unknown]
  - Palpitations [Unknown]
  - Liver function test abnormal [Unknown]
  - Drug reaction with eosinophilia and systemic symptoms [Unknown]
  - Aspartate aminotransferase increased [Unknown]
  - Abdominal pain upper [Unknown]
  - Flushing [Unknown]
  - Infusion site vesicles [Unknown]
  - Hepatotoxicity [Unknown]
  - Activated partial thromboplastin time prolonged [Unknown]
  - Rash pruritic [Recovering/Resolving]
  - Pruritus [Unknown]
  - Rash maculo-papular [Unknown]
  - Acute hepatic failure [Unknown]
  - Transaminases increased [Unknown]
  - Pyrexia [Unknown]
  - Eosinophil count increased [Recovering/Resolving]
  - Alanine aminotransferase increased [Unknown]
  - Blood alkaline phosphatase increased [Unknown]
  - Protein total increased [Unknown]
  - Hepatic steatosis [Unknown]
